FAERS Safety Report 23054061 (Version 2)
Quarter: 2023Q4

REPORT INFORMATION
  Report Type: Report from Study
  Country: ES (occurrence: ES)
  Receive Date: 20231011
  Receipt Date: 20231016
  Transmission Date: 20240110
  Serious: Yes (Hospitalization, Other)
  Sender: FDA-Public Use
  Company Number: ES-ABBVIE-5434763

PATIENT
  Age: 57 Year
  Sex: Female

DRUGS (2)
  1. CARBIDOPA\LEVODOPA [Suspect]
     Active Substance: CARBIDOPA\LEVODOPA
     Indication: Parkinson^s disease
     Route: 050
     Dates: start: 20210617
  2. CARBIDOPA\LEVODOPA [Suspect]
     Active Substance: CARBIDOPA\LEVODOPA

REACTIONS (5)
  - Vomiting [Recovered/Resolved]
  - Device dislocation [Recovered/Resolved]
  - Device difficult to use [Not Recovered/Not Resolved]
  - Off label use [Unknown]
  - Stoma site erythema [Recovering/Resolving]

NARRATIVE: CASE EVENT DATE: 20231002
